FAERS Safety Report 12829573 (Version 1)
Quarter: 2016Q4

REPORT INFORMATION
  Report Type: Spontaneous
  Country: US (occurrence: US)
  Receive Date: 20161007
  Receipt Date: 20161007
  Transmission Date: 20170207
  Serious: No
  Sender: FDA-Public Use
  Company Number: US-SA-2016SA065937

PATIENT
  Age: 58 Year
  Sex: Female

DRUGS (11)
  1. TYLENOL [Concomitant]
     Active Substance: ACETAMINOPHEN
  2. OXYCODONE [Concomitant]
     Active Substance: OXYCODONE
  3. COLACE [Concomitant]
     Active Substance: DOCUSATE SODIUM
  4. AUBAGIO [Suspect]
     Active Substance: TERIFLUNOMIDE
     Indication: MULTIPLE SCLEROSIS
     Route: 048
     Dates: start: 20150916
  5. FENTANYL. [Concomitant]
     Active Substance: FENTANYL
  6. ROBITUSSIN (GUAIFENESIN) [Concomitant]
     Active Substance: GUAIFENESIN
  7. DIAZEPAM. [Concomitant]
     Active Substance: DIAZEPAM
  8. PRILOSEC [Concomitant]
     Active Substance: OMEPRAZOLE MAGNESIUM
  9. MELATONIN [Concomitant]
     Active Substance: MELATONIN
  10. SENNA [Concomitant]
     Active Substance: SENNA LEAF\SENNOSIDES\SENNOSIDES A AND B
  11. EFFEXOR XR [Concomitant]
     Active Substance: VENLAFAXINE HYDROCHLORIDE

REACTIONS (1)
  - Nightmare [Unknown]

NARRATIVE: CASE EVENT DATE: 20160322
